FAERS Safety Report 7706266-4 (Version None)
Quarter: 2011Q3

REPORT INFORMATION
  Report Type: 
  Country: None (occurrence: None)
  Receive Date: 20110824
  Receipt Date: 20110817
  Transmission Date: 20111222
  Serious: Yes (Other)
  Sender: FDA-Public Use
  Company Number: US-ROCHE-794816

PATIENT
  Sex: Male

DRUGS (2)
  1. PEGASYS [Suspect]
     Route: 065
  2. COPEGUS [Suspect]
     Route: 065

REACTIONS (6)
  - URINARY INCONTINENCE [None]
  - PROCEDURAL COMPLICATION [None]
  - WEIGHT DECREASED [None]
  - FAECAL INCONTINENCE [None]
  - BLOOD TEST ABNORMAL [None]
  - HEPATIC NEOPLASM MALIGNANT [None]
